FAERS Safety Report 21253521 (Version 1)
Quarter: 2022Q3

REPORT INFORMATION
  Report Type: Spontaneous
  Country: US (occurrence: None)
  Receive Date: 20220824
  Receipt Date: 20220824
  Transmission Date: 20221026
  Serious: No
  Sender: FDA-Public Use
  Company Number: None

PATIENT
  Age: 46 Year
  Sex: Female

DRUGS (1)
  1. IRON SUCROSE [Suspect]
     Active Substance: IRON SUCROSE
     Dates: start: 20220819, end: 20220819

REACTIONS (9)
  - Infusion related reaction [None]
  - Nausea [None]
  - Hypoacusis [None]
  - Chest discomfort [None]
  - Dizziness [None]
  - Skin discolouration [None]
  - Presyncope [None]
  - Hypotension [None]
  - Vomiting [None]

NARRATIVE: CASE EVENT DATE: 20220819
